FAERS Safety Report 6812736-3 (Version None)
Quarter: 2010Q3

REPORT INFORMATION
  Report Type: 
  Country: None (occurrence: None)
  Receive Date: 20100701
  Receipt Date: 20100629
  Transmission Date: 20110219
  Serious: Yes (Hospitalization)
  Sender: FDA-Public Use
  Company Number: A0867743A

PATIENT
  Age: 53 Year
  Sex: Female

DRUGS (2)
  1. AVANDIA [Suspect]
     Dosage: 4MG PER DAY
     Route: 048
     Dates: start: 20000501, end: 20050601
  2. AVANDAMET [Suspect]
     Route: 048
     Dates: start: 20050701, end: 20060201

REACTIONS (2)
  - CARDIAC FAILURE CONGESTIVE [None]
  - CARDIAC OPERATION [None]
